FAERS Safety Report 6707486-8 (Version None)
Quarter: 2010Q2

REPORT INFORMATION
  Report Type: 
  Country: None (occurrence: None)
  Receive Date: 20100503
  Receipt Date: 20081015
  Transmission Date: 20101027
  Serious: Yes (Other)
  Sender: FDA-Public Use
  Company Number: ZA-BAYER-200829078GPV

PATIENT
  Age: 42 Year
  Sex: Male

DRUGS (1)
  1. AVELON [Suspect]
     Indication: LOBAR PNEUMONIA
     Route: 048

REACTIONS (3)
  - ARTHRALGIA [None]
  - MUSCLE SPASMS [None]
  - MYOSITIS [None]
